FAERS Safety Report 6200126-6 (Version None)
Quarter: 2009Q2

REPORT INFORMATION
  Report Type: 
  Country: None (occurrence: None)
  Receive Date: 20090522
  Receipt Date: 20090519
  Transmission Date: 20091009
  Serious: Yes (Death, Life-Threatening, Hospitalization, Disabling)
  Sender: FDA-Public Use
  Company Number: PHHY2009JP12273

PATIENT
  Sex: Female
  Weight: 64 kg

DRUGS (6)
  1. GLEEVEC [Suspect]
     Indication: CHRONIC MYELOID LEUKAEMIA
     Dosage: UNK
     Dates: start: 20040101
  2. GLEEVEC [Suspect]
     Dosage: 200MG
     Route: 048
     Dates: start: 20050101
  3. GLEEVEC [Suspect]
     Dosage: 300MG
     Route: 048
     Dates: start: 20050401
  4. GLEEVEC [Suspect]
     Dosage: 400MG
     Route: 048
     Dates: start: 20070201
  5. THYRADIN [Concomitant]
     Dosage: 3 DF, UNK
     Route: 048
     Dates: end: 20071127
  6. PREDONINE [Concomitant]
     Dosage: 1 DF, UNK
     Route: 048
     Dates: end: 20071127

REACTIONS (21)
  - ALTERED STATE OF CONSCIOUSNESS [None]
  - APHASIA [None]
  - BLAST CRISIS IN MYELOGENOUS LEUKAEMIA [None]
  - BLOOD PRESSURE DECREASED [None]
  - C-REACTIVE PROTEIN INCREASED [None]
  - CARDIO-RESPIRATORY ARREST [None]
  - CEREBRAL INFARCTION [None]
  - CHRONIC MYELOID LEUKAEMIA TRANSFORMATION [None]
  - DYSARTHRIA [None]
  - GAIT DISTURBANCE [None]
  - HEART RATE DECREASED [None]
  - HEMIPLEGIA [None]
  - HYPOAESTHESIA [None]
  - MULTI-ORGAN FAILURE [None]
  - PARALYSIS [None]
  - PNEUMONIA [None]
  - PRODUCTIVE COUGH [None]
  - PYREXIA [None]
  - SUBDURAL HAEMATOMA [None]
  - SUBDURAL HAEMATOMA EVACUATION [None]
  - WHITE BLOOD CELL COUNT INCREASED [None]
